FAERS Safety Report 14083164 (Version 2)
Quarter: 2017Q4

REPORT INFORMATION
  Report Type: Report from Study
  Country: US (occurrence: US)
  Receive Date: 20171013
  Receipt Date: 20171201
  Transmission Date: 20180321
  Serious: Yes (Hospitalization)
  Sender: FDA-Public Use
  Company Number: US-VIFOR (INTERNATIONAL) INC.-VIT-2017-10197

PATIENT
  Age: 81 Year
  Sex: Female
  Weight: 80.81 kg

DRUGS (14)
  1. PRAVASTATIN. [Concomitant]
     Active Substance: PRAVASTATIN
  2. TRAZODONE [Concomitant]
     Active Substance: TRAZODONE HYDROCHLORIDE
  3. CALCITRIOL. [Concomitant]
     Active Substance: CALCITRIOL
  4. METOPROLOL. [Concomitant]
     Active Substance: METOPROLOL
  5. FUROSEMIDE. [Concomitant]
     Active Substance: FUROSEMIDE
  6. ESCITALOPRAM [Concomitant]
     Active Substance: ESCITALOPRAM OXALATE
  7. OXYCODONE~~PARACETAMOL [Concomitant]
  8. SODIUM BICARBONATE. [Concomitant]
     Active Substance: SODIUM BICARBONATE
  9. HYDRALAZINE [Concomitant]
     Active Substance: HYDRALAZINE HYDROCHLORIDE
  10. VELTASSA [Suspect]
     Active Substance: PATIROMER
     Indication: HYPERKALAEMIA
     Route: 048
     Dates: start: 20161118
  11. OMEPRAZOLE. [Concomitant]
     Active Substance: OMEPRAZOLE
  12. LISINOPRIL. [Concomitant]
     Active Substance: LISINOPRIL
  13. DICLOFENAC [Concomitant]
     Active Substance: DICLOFENAC
  14. BUMETANIDE. [Concomitant]
     Active Substance: BUMETANIDE

REACTIONS (1)
  - Gastrointestinal disorder [Not Recovered/Not Resolved]

NARRATIVE: CASE EVENT DATE: 20170605
